FAERS Safety Report 24534956 (Version 2)
Quarter: 2025Q1

REPORT INFORMATION
  Report Type: Spontaneous
  Country: US (occurrence: US)
  Receive Date: 20241022
  Receipt Date: 20250128
  Transmission Date: 20250409
  Serious: No
  Sender: BRISTOL-MYERS SQUIBB COMPANY
  Company Number: US-BRISTOL-MYERS SQUIBB COMPANY-2024-166079

PATIENT
  Age: 67 Year
  Sex: Male

DRUGS (1)
  1. POMALYST [Suspect]
     Active Substance: POMALIDOMIDE
     Indication: Plasma cell myeloma
     Route: 048
     Dates: start: 20241002, end: 20250123

REACTIONS (6)
  - Heart rate irregular [Unknown]
  - Pruritus [Unknown]
  - Skin irritation [Unknown]
  - Nausea [Unknown]
  - Depersonalisation/derealisation disorder [Unknown]
  - Sleep disorder [Unknown]
